FAERS Safety Report 9178596 (Version 1)
Quarter: 2013Q1

REPORT INFORMATION
  Report Type: Spontaneous
  Country: MX (occurrence: MX)
  Receive Date: 20130321
  Receipt Date: 20130321
  Transmission Date: 20140127
  Serious: Yes (Other)
  Sender: FDA-Public Use
  Company Number: PHHY2013MX027658

PATIENT
  Age: 59 Year
  Sex: Female

DRUGS (2)
  1. GALVUS MET [Suspect]
     Dosage: 1 UKN, DAILY
     Dates: start: 201101
  2. DIOVAN [Suspect]
     Indication: HYPERTENSION
     Dosage: 80 MG, DAILY
     Route: 048
     Dates: start: 201101

REACTIONS (1)
  - Ophthalmoplegia [Recovered/Resolved]
